FAERS Safety Report 18633581 (Version 1)
Quarter: 2020Q4

REPORT INFORMATION
  Report Type: Spontaneous
  Country: US (occurrence: US)
  Receive Date: 20201217
  Receipt Date: 20201217
  Transmission Date: 20210114
  Serious: Yes (Other)
  Sender: FDA-Public Use
  Company Number: None

PATIENT
  Age: 50 Year
  Sex: Male

DRUGS (1)
  1. BOSULIF [Suspect]
     Active Substance: BOSUTINIB MONOHYDRATE
     Indication: LEUKAEMIA
     Route: 048
     Dates: start: 20201120, end: 20201216

REACTIONS (10)
  - Abdominal pain [None]
  - Hyperhidrosis [None]
  - Diarrhoea [None]
  - Gastric dilatation [None]
  - Paraesthesia [None]
  - Gastric disorder [None]
  - Pain in extremity [None]
  - Hypoaesthesia [None]
  - Rectal haemorrhage [None]
  - Dyspnoea [None]
